FAERS Safety Report 15805851 (Version 1)
Quarter: 2019Q1

REPORT INFORMATION
  Report Type: Spontaneous
  Country: US (occurrence: US)
  Receive Date: 20190110
  Receipt Date: 20190110
  Transmission Date: 20190417
  Serious: No
  Sender: FDA-Public Use
  Company Number: US-AMGEN-USASP2019001753

PATIENT
  Age: 59 Year
  Sex: Female

DRUGS (1)
  1. AIMOVIG [Suspect]
     Active Substance: ERENUMAB-AOOE
     Indication: HEADACHE
     Dosage: 70 MG, QMO
     Route: 065
     Dates: start: 201808, end: 201810

REACTIONS (4)
  - Rash pruritic [Not Recovered/Not Resolved]
  - Rash papular [Not Recovered/Not Resolved]
  - Drug ineffective [Unknown]
  - Rash erythematous [Not Recovered/Not Resolved]

NARRATIVE: CASE EVENT DATE: 2018
